FAERS Safety Report 14343288 (Version 1)
Quarter: 2018Q1

REPORT INFORMATION
  Report Type: Spontaneous
  Country: FR (occurrence: FR)
  Receive Date: 20180102
  Receipt Date: 20180102
  Transmission Date: 20180509
  Serious: Yes (Other)
  Sender: FDA-Public Use
  Company Number: FR-JNJFOC-20151118378

PATIENT
  Age: 42 Year
  Sex: Female
  Weight: 76 kg

DRUGS (2)
  1. EPITOMAX [Suspect]
     Active Substance: TOPIRAMATE
     Indication: MIGRAINE
     Route: 048
     Dates: end: 20151115
  2. EPITOMAX [Suspect]
     Active Substance: TOPIRAMATE
     Indication: HEADACHE
     Route: 048
     Dates: end: 20151115

REACTIONS (5)
  - Meningioma [Unknown]
  - Exposure during pregnancy [Recovered/Resolved]
  - Headache [Unknown]
  - Fibroma [Unknown]
  - Contraindication to medical treatment [Recovered/Resolved]

NARRATIVE: CASE EVENT DATE: 20150916
